FAERS Safety Report 6719929-4 (Version None)
Quarter: 2010Q2

REPORT INFORMATION
  Report Type: 
  Country: None (occurrence: None)
  Receive Date: 20100506
  Receipt Date: 20100423
  Transmission Date: 20101027
  Serious: Yes (Death, Other)
  Sender: FDA-Public Use
  Company Number: 2010EU001470

PATIENT
  Age: 64 Year
  Sex: Male
  Weight: 69 kg

DRUGS (7)
  1. FK463 (MICAFUNGIN) INJECTION [Suspect]
     Indication: ANTIFUNGAL PROPHYLAXIS
     Dosage: 100 MG, IV NOS
     Route: 042
     Dates: start: 20100329, end: 20100408
  2. ESOMEPRAZOLE MAGNESIUM [Concomitant]
  3. HYDREA [Concomitant]
  4. LEVOFLOXACIN [Concomitant]
  5. URSO FALK [Concomitant]
  6. RED BLOOD CELLS [Concomitant]
  7. RACROLIMUS (TACROLIMUS) [Concomitant]

REACTIONS (9)
  - BLOOD ALKALINE PHOSPHATASE INCREASED [None]
  - BLOOD BILIRUBIN INCREASED [None]
  - BLOOD CREATININE INCREASED [None]
  - BLOOD LACTIC ACID INCREASED [None]
  - BLOOD UREA INCREASED [None]
  - CARDIAC ARREST [None]
  - HAEMOTHORAX [None]
  - HEPATOTOXICITY [None]
  - SHOCK [None]
